FAERS Safety Report 23104284 (Version 2)
Quarter: 2023Q4

REPORT INFORMATION
  Report Type: Report from Study
  Country: DE (occurrence: DE)
  Receive Date: 20231025
  Receipt Date: 20231123
  Transmission Date: 20240110
  Serious: Yes (Death, Other)
  Sender: FDA-Public Use
  Company Number: DE-TAKEDA-2023TUS103268

PATIENT
  Age: 70 Year
  Sex: Female

DRUGS (1)
  1. HUMAN IMMUNOGLOBULIN G\HYALURONIDASE RECOMBINANT HUMAN [Suspect]
     Active Substance: HUMAN IMMUNOGLOBULIN G\HYALURONIDASE (HUMAN RECOMBINANT)
     Indication: Immunodeficiency common variable
     Dosage: UNK UNK, Q2WEEKS
     Route: 058
     Dates: start: 20181019, end: 202310

REACTIONS (1)
  - Death [Fatal]

NARRATIVE: CASE EVENT DATE: 20231015
